FAERS Safety Report 7058920-8 (Version None)
Quarter: 2010Q4

REPORT INFORMATION
  Report Type: 
  Country: None (occurrence: None)
  Receive Date: 20101024
  Receipt Date: 20101011
  Transmission Date: 20110411
  Serious: Yes (Hospitalization)
  Sender: FDA-Public Use
  Company Number: US-ELI_LILLY_AND_COMPANY-US201010002634

PATIENT
  Sex: Female

DRUGS (16)
  1. FORTEO [Suspect]
     Indication: OSTEOPOROSIS
     Dosage: 20 UG, DAILY (1/D)
  2. LORTAB [Concomitant]
  3. COLACE [Concomitant]
  4. VITAMIN TAB [Concomitant]
  5. PRAVACHOL [Concomitant]
  6. ADVAIR DISKUS 100/50 [Concomitant]
  7. METOPROLOL [Concomitant]
  8. DIAZIDE [Concomitant]
  9. AGGRENOX [Concomitant]
  10. PROTONIX [Concomitant]
  11. BACTRIM [Concomitant]
  12. MIACALCIN [Concomitant]
  13. VITAMIN D [Concomitant]
  14. LEVOTHYROXINE [Concomitant]
  15. SINGULAIR [Concomitant]
  16. MIRALAX [Concomitant]

REACTIONS (1)
  - CHEST DISCOMFORT [None]
